FAERS Safety Report 8908776 (Version 2)
Quarter: 2013Q1

REPORT INFORMATION
  Report Type: Spontaneous
  Country: FR (occurrence: FR)
  Receive Date: 20121114
  Receipt Date: 20130129
  Transmission Date: 20140127
  Serious: Yes (Death)
  Sender: FDA-Public Use
  Company Number: FR-ROCHE-1154706

PATIENT
  Age: 43 Year
  Sex: Male
  Weight: 74 kg

DRUGS (17)
  1. RIVOTRIL [Suspect]
     Indication: EPILEPSY
     Dosage: 1/2-0-1/2
     Route: 065
     Dates: start: 2005
  2. LEPTICUR [Concomitant]
     Route: 065
  3. MESTINON [Concomitant]
     Route: 065
  4. CLOZAPINE [Concomitant]
     Dosage: 4 TABLETS (1-1-2)
     Route: 065
  5. CLOZAPINE [Concomitant]
     Dosage: 2 TABLETS (0-2-0)
     Route: 065
  6. CLOZAPINE [Concomitant]
     Route: 065
     Dates: start: 2005
  7. TAREG [Concomitant]
     Dosage: 1-0-0
     Route: 065
  8. CALCIDOSE VITAMINE D [Concomitant]
     Dosage: 0-1-0
     Route: 065
  9. DEXERYL (FRANCE) [Concomitant]
     Dosage: 1 APPLICATION IN THE MORNING
     Route: 065
  10. DUPHALAC [Concomitant]
     Dosage: 2-2-(2 IF NEEDED)
     Route: 065
  11. LANSOYL [Concomitant]
     Dosage: 1-1-1
     Route: 065
  12. FOSAMAX [Concomitant]
     Route: 065
  13. SCOPODERM TTS [Concomitant]
     Dosage: 1/3 DAILY
     Route: 065
  14. DAFALGAN [Concomitant]
     Dosage: 2-2-2 IF NEEDED
     Route: 065
  15. MOTILIUM (FRANCE) [Concomitant]
     Dosage: 2-2-2 IF HE NEEDED
     Route: 065
  16. NORMACOL (FRANCE) [Concomitant]
     Dosage: IF NEEDED
     Route: 065
  17. THERALENE (FRANCE) [Concomitant]
     Dosage: 0-0-0-25 (IF NEEDED)
     Route: 065

REACTIONS (2)
  - Sudden death [Fatal]
  - Malaise [Unknown]
